FAERS Safety Report 10930053 (Version 1)
Quarter: 2015Q1

REPORT INFORMATION
  Report Type: Spontaneous
  Country: US (occurrence: None)
  Receive Date: 20150317
  Receipt Date: 20150317
  Transmission Date: 20150721
  Serious: Yes (Hospitalization, Other)
  Sender: FDA-Public Use
  Company Number: US-ZYDUS-007221

PATIENT
  Sex: Male

DRUGS (6)
  1. FENTANYL (FENTANYL) [Suspect]
     Active Substance: FENTANYL
  2. SEVOFLURANE (SEVOFLURANE) (SEVOFLURANE) [Suspect]
     Active Substance: SEVOFLURANE
  3. MORPHINE (MORPHINE) [Suspect]
     Active Substance: MORPHINE
     Indication: PAIN
     Route: 015
  4. ROCURONIUM BROMIDE (ROCURONIUM BROMIDE) [Suspect]
     Active Substance: ROCURONIUM BROMIDE
  5. BETAMETHASONE [Suspect]
     Active Substance: BETAMETHASONE
  6. PROPOFOL (PROPOFOL) [Suspect]
     Active Substance: PROPOFOL

REACTIONS (2)
  - Neonatal respiratory depression [None]
  - Foetal exposure during pregnancy [None]
